FAERS Safety Report 4772692-9 (Version None)
Quarter: 2005Q3

REPORT INFORMATION
  Report Type: 
  Country: None (occurrence: None)
  Receive Date: 20050915
  Receipt Date: 20050915
  Transmission Date: 20060218
  Serious: Yes (Life-Threatening)
  Sender: FDA-Public Use
  Company Number: None

PATIENT
  Age: 45 Year
  Sex: Female
  Weight: 75 kg

DRUGS (8)
  1. DAPTOMYCIN (CUBICIN) CUBIST [Suspect]
     Indication: ENTEROCOCCAL BACTERAEMIA
     Dosage: 550 MG Q 24 H IV
     Route: 042
     Dates: start: 20050829, end: 20050908
  2. MIDAZOLAM [Concomitant]
  3. FENTANYL [Concomitant]
  4. INSULIN [Concomitant]
  5. DILTIAZEM [Concomitant]
  6. MEROPENEM [Concomitant]
  7. LEVOFLOXACIN [Concomitant]
  8. AMPHOTERICIN B [Concomitant]

REACTIONS (1)
  - RHABDOMYOLYSIS [None]
